FAERS Safety Report 18053574 (Version 4)
Quarter: 2022Q1

REPORT INFORMATION
  Report Type: Spontaneous
  Country: JP (occurrence: JP)
  Receive Date: 20200722
  Receipt Date: 20220103
  Transmission Date: 20220423
  Serious: Yes (Hospitalization, Other)
  Sender: FDA-Public Use
  Company Number: JP-ELI_LILLY_AND_COMPANY-JP202007008166

PATIENT
  Sex: Female

DRUGS (28)
  1. ADCIRCA [Suspect]
     Active Substance: TADALAFIL
     Indication: Pulmonary arterial hypertension
     Dosage: 20 MG, DAILY
     Route: 065
  2. UPTRAVI [Suspect]
     Active Substance: SELEXIPAG
     Indication: Pulmonary arterial hypertension
     Dosage: 0.2 MG, DAILY
     Route: 048
     Dates: start: 20180116, end: 20180129
  3. UPTRAVI [Suspect]
     Active Substance: SELEXIPAG
     Dosage: 0.4 MG, DAILY
     Route: 048
     Dates: start: 20180130, end: 20180213
  4. UPTRAVI [Suspect]
     Active Substance: SELEXIPAG
     Dosage: 0.6 MG, UNKNOWN
     Route: 048
     Dates: start: 20180214, end: 20180226
  5. UPTRAVI [Suspect]
     Active Substance: SELEXIPAG
     Dosage: 0.8 MG, DAILY
     Route: 048
     Dates: start: 20180227
  6. AUGMENTIN [Suspect]
     Active Substance: AMOXICILLIN\CLAVULANATE POTASSIUM
     Indication: Lymphoma
     Dosage: UNK, TID
     Route: 048
     Dates: start: 20210204, end: 20210206
  7. OPSUMIT [Concomitant]
     Active Substance: MACITENTAN
     Indication: Pulmonary arterial hypertension
     Dosage: 10 MG, UNKNOWN
     Route: 065
  8. PREDONINE [Concomitant]
     Active Substance: PREDNISOLONE
     Indication: Systemic scleroderma
     Dosage: 5 MG, UNKNOWN
     Dates: start: 20160726
  9. VONOPRAZAN FUMARATE [Concomitant]
     Active Substance: VONOPRAZAN FUMARATE
     Indication: Gastrooesophageal reflux disease
     Dosage: 10 MG
  10. AMBROXOL HYDROCHLORIDE [Concomitant]
     Active Substance: AMBROXOL HYDROCHLORIDE
     Indication: Interstitial lung disease
     Dosage: 45 MG
  11. ELDECALCITOL [Concomitant]
     Active Substance: ELDECALCITOL
     Indication: Osteoporosis
     Dosage: 0.75 UG, UNKNOWN
  12. FUROSEMIDE [Concomitant]
     Active Substance: FUROSEMIDE
     Indication: Cardiac failure
     Dosage: 20 MG, UNKNOWN
  13. TIMOLOL [Concomitant]
     Active Substance: TIMOLOL
     Indication: Glaucoma
     Dosage: UNK
  14. RISEDRONATE SODIUM [Concomitant]
     Active Substance: RISEDRONATE SODIUM
     Indication: Osteoporosis
     Dosage: UNK, UNKNOWN
  15. RISEDRONATE SODIUM [Concomitant]
     Active Substance: RISEDRONATE SODIUM
     Dosage: UNK, UNKNOWN
  16. GASMOTIN [MOSAPRIDE CITRATE] [Concomitant]
     Indication: Chronic gastritis
     Dosage: UNK, UNKNOWN
  17. TOCOPHEROL [Concomitant]
     Active Substance: TOCOPHEROL
     Indication: Hyperlipidaemia
     Dosage: 300 MG
  18. ETODOLAC [Concomitant]
     Active Substance: ETODOLAC
     Indication: Sjogren^s syndrome
     Dosage: UNK, UNKNOWN
  19. REBAMIPIDE [Concomitant]
     Active Substance: REBAMIPIDE
     Indication: Chronic gastritis
     Dosage: UNK, UNKNOWN
  20. NEUROVITAN [CYANOCOBALAMIN;OCTOTIAMINE;PYRIDO [Concomitant]
     Indication: Neuropathy peripheral
     Dosage: 2 DOSAGE FORM, UNKNOWN
  21. BISOPROLOL FUMARATE [Concomitant]
     Active Substance: BISOPROLOL FUMARATE
     Indication: Cardiac failure
     Dosage: UNK, UNKNOWN
     Dates: start: 20210218, end: 20210309
  22. FOLIC ACID [Concomitant]
     Active Substance: FOLIC ACID
     Indication: Folate deficiency
     Dosage: 5 MG, UNKNOWN
  23. ACETYLCYSTEINE [Concomitant]
     Active Substance: ACETYLCYSTEINE
     Indication: Interstitial lung disease
     Dosage: UNK, UNKNOWN
  24. ICOSAPENT ETHYL [Concomitant]
     Active Substance: ICOSAPENT ETHYL
     Indication: Hyperlipidaemia
     Dosage: UNK
  25. CAMOSTAT MESYLATE [Concomitant]
     Active Substance: CAMOSTAT MESYLATE
     Indication: Pancreatitis chronic
     Dosage: 300 MG
  26. DIBEKACIN SULFATE [Concomitant]
     Active Substance: DIBEKACIN SULFATE
     Indication: Conjunctivitis
     Dosage: UNK, UNKNOWN
     Dates: start: 20180717
  27. SODIUM FERROUS CITRATE [Concomitant]
     Active Substance: SODIUM FERROUS CITRATE
     Indication: Anaemia macrocytic
     Dosage: UNK, UNKNOWN
     Dates: start: 20200526
  28. AMLODIPINE BESYLATE [Concomitant]
     Active Substance: AMLODIPINE BESYLATE
     Indication: Hypertension
     Dosage: 2.5 MG, UNKNOWN
     Dates: start: 20180423

REACTIONS (15)
  - Left ventricular failure [Recovering/Resolving]
  - Varicose vein [Recovering/Resolving]
  - Extranodal marginal zone B-cell lymphoma (MALT type) [Recovered/Resolved]
  - Dyspnoea [Recovered/Resolved]
  - Haemoglobin decreased [Recovering/Resolving]
  - Oesophageal candidiasis [Recovering/Resolving]
  - Dental caries [Recovered/Resolved]
  - Pericoronitis [Recovered/Resolved]
  - Faeces soft [Recovered/Resolved]
  - Clostridium difficile colitis [Recovered/Resolved]
  - Atelectasis [Recovered/Resolved]
  - Haemorrhage [Recovered/Resolved]
  - Hypotension [Recovering/Resolving]
  - Hypotension [Recovering/Resolving]
  - Diarrhoea [Recovered/Resolved]

NARRATIVE: CASE EVENT DATE: 20180101
